FAERS Safety Report 15330205 (Version 1)
Quarter: 2018Q3

REPORT INFORMATION
  Report Type: Spontaneous
  Country: US (occurrence: US)
  Receive Date: 20180829
  Receipt Date: 20180829
  Transmission Date: 20181010
  Serious: Yes (Hospitalization)
  Sender: FDA-Public Use
  Company Number: US-JNJFOC-20180837807

PATIENT
  Age: 59 Year
  Sex: Female
  Weight: 98.1 kg

DRUGS (1)
  1. INVOKANA [Suspect]
     Active Substance: CANAGLIFLOZIN
     Indication: TYPE 2 DIABETES MELLITUS
     Route: 048
     Dates: start: 20150424

REACTIONS (4)
  - Cellulitis [Unknown]
  - Sepsis [Recovered/Resolved]
  - Foot amputation [Unknown]
  - Skin necrosis [Unknown]

NARRATIVE: CASE EVENT DATE: 201608
